FAERS Safety Report 7581377-5 (Version None)
Quarter: 2011Q2

REPORT INFORMATION
  Report Type: 
  Country: None (occurrence: None)
  Receive Date: 20110629
  Receipt Date: 20110624
  Transmission Date: 20111010
  Serious: Yes (Death, Life-Threatening, Congenital Anomaly, Other)
  Sender: FDA-Public Use
  Company Number: IE-GILEAD-2011-0039236

PATIENT
  Sex: Female
  Weight: 2.7 kg

DRUGS (5)
  1. REYATAZ [Concomitant]
     Indication: HIV INFECTION
     Route: 064
     Dates: start: 20090416
  2. NORVIR [Concomitant]
     Indication: HIV INFECTION
     Route: 064
     Dates: start: 20090416
  3. METHADONE HCL [Concomitant]
     Route: 064
  4. BENZODIAZAPINE [Concomitant]
     Route: 064
  5. TRUVADA [Suspect]
     Indication: HIV INFECTION
     Route: 064
     Dates: start: 20090416

REACTIONS (7)
  - SMALL FOR DATES BABY [None]
  - VENTRICULAR SEPTAL DEFECT [None]
  - CONVULSION [None]
  - CONGENITAL NEUROLOGICAL DISORDER [None]
  - CEREBRAL INFARCTION [None]
  - PATENT DUCTUS ARTERIOSUS [None]
  - WITHDRAWAL SYNDROME [None]
